FAERS Safety Report 14169426 (Version 1)
Quarter: 2017Q4

REPORT INFORMATION
  Report Type: Spontaneous
  Country: US (occurrence: US)
  Receive Date: 20171107
  Receipt Date: 20171107
  Transmission Date: 20180321
  Serious: Yes (Hospitalization)
  Sender: FDA-Public Use
  Company Number: None

PATIENT
  Age: 77 Year
  Sex: Female
  Weight: 80.7 kg

DRUGS (10)
  1. FUROSEMIDE. [Concomitant]
     Active Substance: FUROSEMIDE
  2. NOVOLOG [Concomitant]
     Active Substance: INSULIN ASPART
  3. LUMIGAN [Concomitant]
     Active Substance: BIMATOPROST
  4. PIMAVANSERIN [Suspect]
     Active Substance: PIMAVANSERIN
     Indication: PARKINSON^S DISEASE PSYCHOSIS
     Route: 048
     Dates: start: 20170403, end: 20171103
  5. CARBIDOPA-LEVADOPA [Concomitant]
  6. ALBUTEROL SULFATE. [Concomitant]
     Active Substance: ALBUTEROL SULFATE
  7. LISINOPRIL. [Concomitant]
     Active Substance: LISINOPRIL
  8. LANTUS SOLOSTAR [Concomitant]
     Active Substance: INSULIN GLARGINE
  9. MYRBETRIQ [Concomitant]
     Active Substance: MIRABEGRON
  10. ROTIGOTINE [Concomitant]
     Active Substance: ROTIGOTINE

REACTIONS (6)
  - Oedema peripheral [None]
  - Dysarthria [None]
  - Speech disorder [None]
  - Oedema [None]
  - Lethargy [None]
  - Mental status changes [None]

NARRATIVE: CASE EVENT DATE: 20171103
